FAERS Safety Report 7356611-7 (Version None)
Quarter: 2011Q1

REPORT INFORMATION
  Report Type: 
  Country: None (occurrence: None)
  Receive Date: 20110316
  Receipt Date: 20110303
  Transmission Date: 20110831
  Serious: Yes (Other)
  Sender: FDA-Public Use
  Company Number: PHHY2011FR17548

PATIENT
  Age: 60 Year
  Sex: Male

DRUGS (1)
  1. AFINITOR [Suspect]
     Indication: RENAL CELL CARCINOMA
     Route: 048

REACTIONS (5)
  - MALAISE [None]
  - DYSPEPSIA [None]
  - ASTHENIA [None]
  - GENERAL PHYSICAL HEALTH DETERIORATION [None]
  - DRUG INTOLERANCE [None]
